FAERS Safety Report 21439230 (Version 1)
Quarter: 2022Q4

REPORT INFORMATION
  Report Type: Other
  Country: CA (occurrence: CA)
  Receive Date: 20221011
  Receipt Date: 20221011
  Transmission Date: 20230113
  Serious: Yes (Other)
  Sender: FDA-Public Use
  Company Number: CA-PFIZER INC-202201205715

PATIENT
  Sex: Male
  Weight: 2 kg

DRUGS (4)
  1. EPINEPHRINE [Suspect]
     Active Substance: EPINEPHRINE
     Indication: Foetal exposure during pregnancy
     Dosage: UNK
     Route: 064
  2. BUPIVACAINE HYDROCHLORIDE [Suspect]
     Active Substance: BUPIVACAINE HYDROCHLORIDE
     Indication: Foetal exposure during pregnancy
     Dosage: UNK
     Route: 064
  3. FENTANYL CITRATE [Suspect]
     Active Substance: FENTANYL CITRATE
     Indication: Foetal exposure during pregnancy
     Dosage: UNK
     Route: 064
  4. MORPHINE SULFATE [Suspect]
     Active Substance: MORPHINE SULFATE
     Indication: Foetal exposure during pregnancy
     Dosage: UNK
     Route: 064

REACTIONS (2)
  - Foetal exposure during delivery [Unknown]
  - Premature baby [Unknown]
